FAERS Safety Report 17669803 (Version 1)
Quarter: 2020Q2

REPORT INFORMATION
  Report Type: Report from Study
  Country: GB (occurrence: GB)
  Receive Date: 20200415
  Receipt Date: 20200415
  Transmission Date: 20200713
  Serious: Yes (Death, Other)
  Sender: FDA-Public Use
  Company Number: GB-SUN PHARMACEUTICAL INDUSTRIES LTD-2020R1-243961

PATIENT
  Age: 50 Year
  Sex: Male

DRUGS (2)
  1. COCAINE [Suspect]
     Active Substance: COCAINE
     Indication: PRODUCT USED FOR UNKNOWN INDICATION
     Dosage: UNK
     Route: 065
  2. CLOZAPINE. [Suspect]
     Active Substance: CLOZAPINE
     Indication: PRODUCT USED FOR UNKNOWN INDICATION
     Dosage: 550 MG
     Route: 065

REACTIONS (11)
  - Pulmonary haemosiderosis [Unknown]
  - Cardiac arrest [Unknown]
  - Spleen congestion [Unknown]
  - Hepatic steatosis [Unknown]
  - Pulmonary oedema [Unknown]
  - Left ventricular hypertrophy [Unknown]
  - Drug abuse [Unknown]
  - Death [Fatal]
  - Hypoxic-ischaemic encephalopathy [Unknown]
  - Aortic arteriosclerosis [Unknown]
  - Myocardial fibrosis [Unknown]
